FAERS Safety Report 9505881 (Version 1)
Quarter: 2013Q1

REPORT INFORMATION
  Report Type: Spontaneous
  Country: US (occurrence: None)
  Receive Date: 20130219
  Receipt Date: 20130219
  Transmission Date: 20140127
  Serious: Yes (Hospitalization, Other)
  Sender: FDA-Public Use
  Company Number: 1207USA010564

PATIENT
  Age: 71 Year
  Sex: Female

DRUGS (9)
  1. ZOCOR (SIMVASTATIN) [Suspect]
     Route: 048
  2. AZD6140 [Suspect]
     Route: 048
  3. METFORMIN (METFORMIN) [Suspect]
     Route: 048
  4. PANTOPRAZOLE (PANTOPRAZOLE) [Suspect]
     Route: 048
  5. RAMIPRIL (RAMIPRIL) [Suspect]
     Route: 048
  6. BISOPROLOL (BISOPROLOL) [Suspect]
     Route: 048
  7. LEVOTHYROXINE SODIUM [Suspect]
     Route: 048
  8. ASPIRIN (ASPIRIN) [Suspect]
     Route: 048
  9. AMLODIPINE (AMLODIPINE) [Suspect]
     Route: 048

REACTIONS (1)
  - Angioedema [None]
